FAERS Safety Report 8529355-3 (Version None)
Quarter: 2012Q2

REPORT INFORMATION
  Report Type: 
  Country: None (occurrence: None)
  Receive Date: 20120406
  Receipt Date: 20110504
  Transmission Date: 20120825
  Serious: Yes (Other)
  Sender: FDA-Public Use
  Company Number: US-2011-10261

PATIENT
  Age: 4 Year
  Sex: Male

DRUGS (8)
  1. RITUXIMAB (RITUXIMAB) [Concomitant]
  2. MYCOPHENOLATE MOFETIL [Concomitant]
  3. AMINOCAPROIC ACID [Concomitant]
  4. BUSULFEX [Suspect]
     Indication: CORD BLOOD TRANSPLANT THERAPY
     Dosage: 16 MG/KG, DAILY DOSE, INTRAVENOUS
     Route: 042
  5. TACROLIMUS [Concomitant]
  6. RECOMBINANT ACTIVATED FACTOR VII (RECOMBINANT ACTIVATED FACTOR VII) [Concomitant]
  7. ATGAM TF (ANTITHYMOCYTE IMMUNOGLOBULIN) [Concomitant]
  8. CYCLOPHOSPHAMIDE [Concomitant]

REACTIONS (5)
  - DYSURIA [None]
  - GRAFT VERSUS HOST DISEASE [None]
  - CYTOMEGALOVIRUS VIRAEMIA [None]
  - HAEMATURIA [None]
  - BK VIRUS INFECTION [None]
